FAERS Safety Report 7645701-7 (Version None)
Quarter: 2011Q3

REPORT INFORMATION
  Report Type: 
  Country: None (occurrence: None)
  Receive Date: 20110729
  Receipt Date: 20110728
  Transmission Date: 20111222
  Serious: No
  Sender: FDA-Public Use
  Company Number: US-PFIZER INC-2011172569

PATIENT
  Sex: Female

DRUGS (2)
  1. ADVIL LIQUI-GELS [Suspect]
     Indication: MIGRAINE
     Dosage: UNK
     Dates: start: 20110701, end: 20110701
  2. ADVIL LIQUI-GELS [Suspect]
     Indication: PAIN IN EXTREMITY

REACTIONS (1)
  - DRUG INEFFECTIVE [None]
